FAERS Safety Report 7459668-8 (Version None)
Quarter: 2011Q2

REPORT INFORMATION
  Report Type: 
  Country: None (occurrence: None)
  Receive Date: 20110505
  Receipt Date: 20110427
  Transmission Date: 20111010
  Serious: Yes (Hospitalization)
  Sender: FDA-Public Use
  Company Number: PHHY2011US27475

PATIENT
  Sex: Female

DRUGS (1)
  1. GILENYA [Suspect]
     Indication: MULTIPLE SCLEROSIS
     Dosage: 0.5 MG, QD
     Route: 048
     Dates: start: 20110202

REACTIONS (6)
  - URINARY TRACT INFECTION [None]
  - CONTUSION [None]
  - PYREXIA [None]
  - KIDNEY INFECTION [None]
  - FATIGUE [None]
  - PAIN [None]
